FAERS Safety Report 12531872 (Version 1)
Quarter: 2016Q3

REPORT INFORMATION
  Report Type: Spontaneous
  Country: FR (occurrence: FR)
  Receive Date: 20160706
  Receipt Date: 20160706
  Transmission Date: 20161109
  Serious: Yes (Life-Threatening)
  Sender: FDA-Public Use
  Company Number: FR-SA-2016SA123457

PATIENT
  Age: 61 Year
  Sex: Female

DRUGS (6)
  1. STILNOX [Suspect]
     Active Substance: ZOLPIDEM TARTRATE
     Route: 048
     Dates: end: 20160510
  2. ZOVIRAX [Suspect]
     Active Substance: ACYCLOVIR
     Route: 048
     Dates: start: 20160502, end: 20160510
  3. DUROGESIC [Suspect]
     Active Substance: FENTANYL
     Route: 003
     Dates: start: 20160508, end: 20160508
  4. PHOCYTAN [Concomitant]
     Active Substance: .ALPHA.-GLUCOSE-1-PHOSPHATE
     Indication: HYPOPHOSPHATAEMIA
     Route: 065
     Dates: start: 20160509
  5. TIAPRIDAL [Suspect]
     Active Substance: TIAPRIDE HYDROCHLORIDE
     Indication: AGITATION
     Route: 042
     Dates: start: 20160508, end: 20160508
  6. TERCIAN [Suspect]
     Active Substance: CYAMEMAZINE
     Indication: AGITATION
     Dosage: 30 DROPS OF TERCIAN AT 4:00 AM THEN 50 DROPS AT 12:30.
     Route: 048
     Dates: start: 20160510, end: 20160510

REACTIONS (1)
  - Coma [Recovered/Resolved]

NARRATIVE: CASE EVENT DATE: 20160510
